FAERS Safety Report 8489830-7 (Version None)
Quarter: 2012Q3

REPORT INFORMATION
  Report Type: 
  Country: None (occurrence: None)
  Receive Date: 20120705
  Receipt Date: 20120626
  Transmission Date: 20120928
  Serious: Yes (Hospitalization, Other)
  Sender: FDA-Public Use
  Company Number: US-ACTELION-A-US2011-46739

PATIENT

DRUGS (3)
  1. TRACLEER [Suspect]
     Indication: PULMONARY ARTERIAL HYPERTENSION
     Dosage: 62.5 MG, BID
     Route: 048
     Dates: start: 20090210
  2. COUMADIN [Concomitant]
  3. REVATIO [Concomitant]

REACTIONS (14)
  - LIMB CRUSHING INJURY [None]
  - PRESYNCOPE [None]
  - NASAL INFLAMMATION [None]
  - CHEST PAIN [None]
  - MULTIPLE FRACTURES [None]
  - SPINAL FRACTURE [None]
  - RIB FRACTURE [None]
  - DYSPNOEA [None]
  - HYPOTENSION [None]
  - SYNCOPE [None]
  - THROMBOSIS [None]
  - EYE INFECTION [None]
  - SWELLING [None]
  - FALL [None]
